FAERS Safety Report 7268818-8 (Version None)
Quarter: 2011Q1

REPORT INFORMATION
  Report Type: 
  Country: None (occurrence: None)
  Receive Date: 20110201
  Receipt Date: 20110119
  Transmission Date: 20110831
  Serious: Yes (Life-Threatening, Hospitalization)
  Sender: FDA-Public Use
  Company Number: NL-MYLANLABS-2011S1001321

PATIENT
  Age: 32 Year
  Sex: Female

DRUGS (4)
  1. OXAZEPAM [Concomitant]
     Route: 065
  2. TEMAZEPAM [Concomitant]
     Route: 065
  3. VALPROIC ACID [Suspect]
     Indication: MIGRAINE
     Dosage: SLOW RELEASE FORMULATION
     Route: 065
  4. INDOMETACIN [Concomitant]
     Route: 065

REACTIONS (12)
  - HYPOTHERMIA [None]
  - ELECTROCARDIOGRAM QT PROLONGED [None]
  - COMA [None]
  - TOXICITY TO VARIOUS AGENTS [None]
  - HYPOGLYCAEMIA [None]
  - SINUS BRADYCARDIA [None]
  - METABOLIC ACIDOSIS [None]
  - RESPIRATORY DEPRESSION [None]
  - HYPERKALAEMIA [None]
  - HYPOTENSION [None]
  - HYPERAMMONAEMIA [None]
  - DEPRESSED LEVEL OF CONSCIOUSNESS [None]
